FAERS Safety Report 23092287 (Version 1)
Quarter: 2023Q4

REPORT INFORMATION
  Report Type: Spontaneous
  Country: US (occurrence: US)
  Receive Date: 20231021
  Receipt Date: 20231021
  Transmission Date: 20240109
  Serious: Yes (Other)
  Sender: FDA-Public Use
  Company Number: US-ABBVIE-5459294

PATIENT
  Age: 72 Year
  Sex: Female

DRUGS (1)
  1. VRAYLAR [Suspect]
     Active Substance: CARIPRAZINE
     Indication: Bipolar II disorder
     Dosage: STRENGTH 1.5MG
     Route: 048

REACTIONS (3)
  - Suicidal ideation [Recovering/Resolving]
  - Extrapyramidal disorder [Recovering/Resolving]
  - Tremor [Recovering/Resolving]
